FAERS Safety Report 7326096-5 (Version None)
Quarter: 2011Q1

REPORT INFORMATION
  Report Type: 
  Country: None (occurrence: None)
  Receive Date: 20110302
  Receipt Date: 20110131
  Transmission Date: 20110831
  Serious: No
  Sender: FDA-Public Use
  Company Number: US-BAYER-2011-013588

PATIENT
  Sex: Male

DRUGS (2)
  1. ALEVE (CAPLET) [Suspect]
     Indication: TENDONITIS
     Dosage: 220 MG, BID
  2. ALEVE (CAPLET) [Suspect]
     Indication: CARPAL TUNNEL SYNDROME

REACTIONS (1)
  - NO ADVERSE EVENT [None]
